FAERS Safety Report 10485037 (Version 1)
Quarter: 2014Q3

REPORT INFORMATION
  Report Type: Report from Study
  Country: US (occurrence: US)
  Receive Date: 20140930
  Receipt Date: 20140930
  Transmission Date: 20150326
  Serious: Yes (Other)
  Sender: FDA-Public Use
  Company Number: US-ABBVIE-14P-163-1288842-00

PATIENT
  Age: 23 Year
  Sex: Female
  Weight: 54.48 kg

DRUGS (2)
  1. LUPRON DEPOT [Suspect]
     Active Substance: LEUPROLIDE ACETATE
     Indication: ENDOMETRIOSIS
     Route: 030
     Dates: start: 2006
  2. NORETHINDRONE. [Concomitant]
     Active Substance: NORETHINDRONE
     Indication: HORMONE REPLACEMENT THERAPY

REACTIONS (16)
  - Central nervous system lesion [Recovered/Resolved]
  - Blood pressure decreased [Recovered/Resolved]
  - Diplopia [Recovered/Resolved]
  - Vomiting [Recovered/Resolved]
  - Appendicitis [Recovered/Resolved]
  - Diarrhoea [Not Recovered/Not Resolved]
  - Cyst rupture [Recovered/Resolved]
  - Abdominal pain [Recovered/Resolved]
  - Endometriosis [Not Recovered/Not Resolved]
  - Nausea [Not Recovered/Not Resolved]
  - Fallopian tube disorder [Recovered/Resolved]
  - Pelvic pain [Not Recovered/Not Resolved]
  - Ascites [Recovered/Resolved]
  - Pyrexia [Recovered/Resolved]
  - Abdominal infection [Recovered/Resolved]
  - Gait disturbance [Not Recovered/Not Resolved]

NARRATIVE: CASE EVENT DATE: 200712
